FAERS Safety Report 5768528-X (Version None)
Quarter: 2008Q2

REPORT INFORMATION
  Report Type: 
  Country: None (occurrence: None)
  Receive Date: 20080610
  Receipt Date: 20080526
  Transmission Date: 20081010
  Serious: Yes (Hospitalization)
  Sender: FDA-Public Use
  Company Number: DSA_31815_2008

PATIENT
  Sex: Male

DRUGS (2)
  1. LORAZEPAM [Suspect]
     Dosage: 25 MG 1X NOT THE PRESCRIBED AMOUNT. ORAL
     Route: 048
     Dates: start: 20080502, end: 20080502
  2. ETHANOL (ALCOHOL - ETHANOL) [Suspect]
     Dosage: ORAL
     Route: 048
     Dates: start: 20080502, end: 20080502

REACTIONS (7)
  - AGITATION [None]
  - ALCOHOL USE [None]
  - COORDINATION ABNORMAL [None]
  - INTENTIONAL OVERDOSE [None]
  - SOMNOLENCE [None]
  - SUICIDE ATTEMPT [None]
  - VOMITING [None]
